FAERS Safety Report 14527261 (Version 1)
Quarter: 2018Q1

REPORT INFORMATION
  Report Type: Spontaneous
  Country: JP (occurrence: JP)
  Receive Date: 20180213
  Receipt Date: 20180213
  Transmission Date: 20180509
  Serious: Yes (Other)
  Sender: FDA-Public Use
  Company Number: JP-UPSHER-SMITH LABORATORIES, LLC-2018USL00051

PATIENT
  Age: 70 Year
  Sex: Male
  Weight: 51.2 kg

DRUGS (10)
  1. AMANTADINE HYDROCHLORIDE. [Suspect]
     Active Substance: AMANTADINE HYDROCHLORIDE
     Indication: PARKINSONISM
     Dosage: 100 MG, 1X/DAY
     Route: 048
     Dates: end: 20180122
  2. ROSUVASTATIN CALCIUM. [Concomitant]
     Active Substance: ROSUVASTATIN CALCIUM
     Dosage: 2.5 MG, 1X/DAY
     Route: 048
     Dates: start: 20171220
  3. MOSAPRIDE CITRATE HYDRATE [Concomitant]
     Active Substance: MOSAPRIDE CITRATE DIHYDRATE
     Dosage: 15 MG, 1X/DAY
     Route: 048
     Dates: start: 20180115
  4. LOXOPROFEN [Concomitant]
     Active Substance: LOXOPROFEN
     Dosage: 3 DF, 1X/DAY
     Route: 048
  5. ZOLPIDEM TARTRATE. [Concomitant]
     Active Substance: ZOLPIDEM TARTRATE
     Dosage: 5 MG, 1X/DAY
     Route: 048
  6. BELSOMRA [Concomitant]
     Active Substance: SUVOREXANT
     Dosage: 15 MG, 1X/DAY
     Route: 048
  7. SODIUM RABEPRAZOLE [Concomitant]
     Active Substance: RABEPRAZOLE SODIUM
     Dosage: 10 MG, 1X/DAY
     Route: 048
  8. MAGMITT [Concomitant]
     Active Substance: MAGNESIUM OXIDE
     Dosage: 1980 MG, 1X/DAY
     Route: 048
  9. CORTRIL [Concomitant]
     Active Substance: HYDROCORTISONE
     Dosage: 10 MG, 1X/DAY
     Route: 048
  10. CORTRIL [Concomitant]
     Active Substance: HYDROCORTISONE
     Dosage: 5 MG, 1X/DAY
     Route: 048

REACTIONS (6)
  - Cognitive disorder [Recovering/Resolving]
  - Hallucination [Recovering/Resolving]
  - Vomiting [Unknown]
  - Decreased appetite [Not Recovered/Not Resolved]
  - Blood urea increased [Unknown]
  - Blood creatinine increased [Unknown]

NARRATIVE: CASE EVENT DATE: 20171219
